FAERS Safety Report 25912725 (Version 1)
Quarter: 2025Q4

REPORT INFORMATION
  Report Type: Spontaneous
  Country: US (occurrence: None)
  Receive Date: 20251013
  Receipt Date: 20251013
  Transmission Date: 20260117
  Serious: Yes (Death, Hospitalization)
  Sender: ENDO
  Company Number: US-ENDO USA, INC.-2025-002113

PATIENT
  Age: 69 Year
  Sex: Male

DRUGS (1)
  1. ADRENALIN [Suspect]
     Active Substance: EPINEPHRINE
     Indication: Anaphylactic reaction
     Dosage: 0.5 MILLIGRAM, SINGLE

REACTIONS (8)
  - Cardiac arrest [Fatal]
  - Kounis syndrome [Unknown]
  - Respiratory failure [Unknown]
  - Cardiogenic shock [Unknown]
  - Acute myocardial infarction [Unknown]
  - Hepatic failure [Unknown]
  - Disseminated intravascular coagulation [Unknown]
  - Brain injury [Unknown]
